FAERS Safety Report 14900798 (Version 1)
Quarter: 2018Q2

REPORT INFORMATION
  Report Type: Spontaneous
  Country: US (occurrence: US)
  Receive Date: 20180428
  Receipt Date: 20180428
  Transmission Date: 20180711
  Serious: No
  Sender: FDA-Public Use
  Company Number: None

PATIENT
  Age: 31 Year
  Sex: Female
  Weight: 77.4 kg

DRUGS (2)
  1. MONISTAT 3 COMBINATION PACK 3 OVULE INSERTS [Suspect]
     Active Substance: MICONAZOLE NITRATE
     Indication: VULVOVAGINAL MYCOTIC INFECTION
     Dosage: ?          QUANTITY:1 VAGINAL APPLICATOR;?
     Route: 067
     Dates: start: 20180301, end: 20180301
  2. LO LOESTRIN FE [Concomitant]
     Active Substance: ETHINYL ESTRADIOL\NORETHINDRONE ACETATE

REACTIONS (3)
  - Vulvovaginal pain [None]
  - Vulvovaginal pruritus [None]
  - Burning sensation [None]

NARRATIVE: CASE EVENT DATE: 20180301
